FAERS Safety Report 5352661-0 (Version None)
Quarter: 2007Q2

REPORT INFORMATION
  Report Type: 
  Country: None (occurrence: None)
  Receive Date: 20070611
  Receipt Date: 20070607
  Transmission Date: 20071010
  Serious: Yes (Death)
  Sender: FDA-Public Use
  Company Number: US-ELI_LILLY_AND_COMPANY-US200705006341

PATIENT
  Age: 57 Year
  Sex: Male

DRUGS (3)
  1. ALIMTA [Suspect]
     Indication: NON-SMALL CELL LUNG CANCER
     Dosage: 500 MG/M2, UNK
     Route: 042
  2. FOLIC ACID [Concomitant]
     Indication: VITAMIN SUPPLEMENTATION
     Dosage: UNK, DAILY (1/D)
  3. VITAMIN B12 NOS [Concomitant]
     Indication: VITAMIN SUPPLEMENTATION

REACTIONS (2)
  - HELICOBACTER PYLORI IDENTIFICATION TEST POSITIVE [None]
  - MALIGNANT NEOPLASM PROGRESSION [None]
